FAERS Safety Report 13405398 (Version 2)
Quarter: 2017Q2

REPORT INFORMATION
  Report Type: Report from Study
  Country: IT (occurrence: IT)
  Receive Date: 20170405
  Receipt Date: 20170412
  Transmission Date: 20170830
  Serious: Yes (Hospitalization)
  Sender: FDA-Public Use
  Company Number: IT-TEVA-755157ACC

PATIENT
  Age: 8 Year
  Sex: Male
  Weight: 44 kg

DRUGS (4)
  1. VINCRISTINA TEVA - TEVA PHARMA B.V. [Suspect]
     Active Substance: VINCRISTINE
     Indication: NON-HODGKIN^S LYMPHOMA
     Route: 042
     Dates: start: 20170303, end: 20170303
  2. HOLOXAN - 1 G POLVERE PER SOLUZIONE INIETTABILE - BAXTER S.P.A. [Suspect]
     Active Substance: IFOSFAMIDE
     Indication: NON-HODGKIN^S LYMPHOMA
     Dosage: 1032 MILLIGRAM DAILY;
     Route: 042
     Dates: start: 20170303, end: 20170307
  3. METHOTREXATE - PFIZER ITALIA S.R.L. [Suspect]
     Active Substance: METHOTREXATE
     Indication: NON-HODGKIN^S LYMPHOMA
     Route: 042
     Dates: start: 20170303, end: 20170304
  4. UROMITEXAN BAXTER S.P.A. [Concomitant]
     Indication: CYSTITIS HAEMORRHAGIC
     Route: 042
     Dates: start: 20170303, end: 20170307

REACTIONS (1)
  - Erythema [Unknown]

NARRATIVE: CASE EVENT DATE: 20170305
